FAERS Safety Report 6057601-7 (Version None)
Quarter: 2009Q1

REPORT INFORMATION
  Report Type: 
  Country: None (occurrence: None)
  Receive Date: 20090126
  Receipt Date: 20090109
  Transmission Date: 20090719
  Serious: Yes (Hospitalization)
  Sender: FDA-Public Use
  Company Number: KV200900067

PATIENT
  Age: 76 Year
  Sex: Female
  Weight: 97.5 kg

DRUGS (11)
  1. ISOSORBIDE MONONITRATE [Suspect]
     Indication: CAPILLARY DISORDER
     Dosage: 60 MG, BID, ORAL
     Route: 048
     Dates: start: 20081001
  2. NITROGLYCERIN [Concomitant]
  3. FUROSEMIDE (FUROSEMIDE) [Concomitant]
  4. POTASSIUM CHLORIDE [Concomitant]
  5. SYNTHROID [Concomitant]
  6. ALBUTEROL /00139501/ (SALBUTAMOL) [Concomitant]
  7. MAGNESIUM (MAGNESIUM) [Concomitant]
  8. DIOVAN [Concomitant]
  9. ASPIRIN [Concomitant]
  10. GLIPIZIDE [Concomitant]
  11. PRAVASTATIN [Concomitant]

REACTIONS (2)
  - ATRIOVENTRICULAR BLOCK [None]
  - PRODUCT QUALITY ISSUE [None]
